FAERS Safety Report 8139514-X (Version None)
Quarter: 2012Q1

REPORT INFORMATION
  Report Type: 
  Country: None (occurrence: None)
  Receive Date: 20120215
  Receipt Date: 20120209
  Transmission Date: 20120608
  Serious: Yes (Death, Hospitalization)
  Sender: FDA-Public Use
  Company Number: US-GILEAD-2012-0048891

PATIENT
  Sex: Female

DRUGS (3)
  1. REMODULIN [Concomitant]
  2. LETAIRIS [Suspect]
     Indication: PULMONARY ARTERIAL HYPERTENSION
     Dosage: 10 MG, UNK
     Route: 048
     Dates: start: 20090501, end: 20120203
  3. ADCIRCA [Concomitant]

REACTIONS (3)
  - CHEST PAIN [None]
  - RIGHT VENTRICULAR FAILURE [None]
  - DYSPNOEA [None]
